FAERS Safety Report 14981343 (Version 2)
Quarter: 2018Q2

REPORT INFORMATION
  Report Type: Spontaneous
  Country: JP (occurrence: JP)
  Receive Date: 20180606
  Receipt Date: 20180615
  Transmission Date: 20180711
  Serious: Yes (Life-Threatening)
  Sender: FDA-Public Use
  Company Number: JP-ANIPHARMA-2018-JP-000089

PATIENT
  Age: 67 Year
  Sex: Male

DRUGS (13)
  1. LANTUS [Concomitant]
     Active Substance: INSULIN GLARGINE
     Dosage: 8 UNITS IN THE MORNING, 14 UNITS
     Route: 065
     Dates: end: 20180513
  2. CASODEX [Suspect]
     Active Substance: BICALUTAMIDE
     Indication: PROSTATE CANCER
     Dosage: 80MG QD
     Route: 048
     Dates: start: 20180329, end: 20180412
  3. TAKEPRON [Concomitant]
     Active Substance: LANSOPRAZOLE
     Dosage: 30MG QD
     Route: 048
     Dates: end: 20180513
  4. ADALAT CC [Concomitant]
     Active Substance: NIFEDIPINE
     Dosage: 20MG BID
     Dates: end: 20180513
  5. GLUBES [Concomitant]
     Active Substance: MITIGLINIDE CALCIUM HYDRATE\VOGLIBOSE
     Dosage: TID
     Route: 048
     Dates: end: 20180513
  6. ZOLADEX LA [Suspect]
     Active Substance: GOSERELIN ACETATE
     Dosage: 10.8MG Q3MO
     Route: 058
     Dates: start: 20180329, end: 20180412
  7. LASIX [Concomitant]
     Active Substance: FUROSEMIDE
     Dosage: 40MG BID
     Route: 048
     Dates: end: 20180522
  8. CALTAN [Concomitant]
     Active Substance: CALCIUM CARBONATE
     Dosage: 100MG TID
     Route: 048
     Dates: end: 20180513
  9. LIPITOR [Concomitant]
     Active Substance: ATORVASTATIN CALCIUM
     Dosage: 10MG QD
     Route: 048
     Dates: end: 20180513
  10. FEBURIC [Concomitant]
     Active Substance: FEBUXOSTAT
     Dosage: 10MG QD
     Route: 048
     Dates: end: 20180513
  11. ALESION [Concomitant]
     Active Substance: EPINASTINE HYDROCHLORIDE
     Dosage: 10MG QD
     Route: 048
     Dates: end: 20180513
  12. TRAZENTA [Concomitant]
     Active Substance: LINAGLIPTIN
     Dosage: 5MG QD
     Route: 048
     Dates: end: 20180513
  13. BIO-THREE [Concomitant]
     Active Substance: HERBALS
     Route: 048
     Dates: end: 20180513

REACTIONS (5)
  - Blood lactate dehydrogenase increased [Unknown]
  - Hepatic enzyme increased [Unknown]
  - Rhabdomyolysis [Unknown]
  - Blood creatine phosphokinase increased [Unknown]
  - Drug-induced liver injury [Unknown]

NARRATIVE: CASE EVENT DATE: 20180403
